FAERS Safety Report 4704439-6 (Version None)
Quarter: 2005Q2

REPORT INFORMATION
  Report Type: 
  Country: None (occurrence: None)
  Receive Date: 20050628
  Receipt Date: 20050614
  Transmission Date: 20051028
  Serious: Yes (Other)
  Sender: FDA-Public Use
  Company Number: FR_050606653

PATIENT
  Age: 83 Year
  Sex: Female

DRUGS (8)
  1. FORSTEO (TERIPARATIDE) [Suspect]
     Indication: OSTEOPOROSIS
     Dosage: 20 UG DAY
     Dates: start: 20050428
  2. HUMULIN N [Concomitant]
  3. MOCLAMINE (MOCLOBEMIDE) [Concomitant]
  4. PAROXETINE HYDROCHLORIDE [Concomitant]
  5. REMINYL [Concomitant]
  6. METOPROLOL TARTRATE [Concomitant]
  7. PLAVIX [Concomitant]
  8. CHONDROSULF (CHONDROITIN SULFATE SODIUM) [Concomitant]

REACTIONS (2)
  - NAUSEA [None]
  - RENAL FAILURE [None]
